FAERS Safety Report 17372763 (Version 1)
Quarter: 2020Q1

REPORT INFORMATION
  Report Type: Not Available
  Country: US (occurrence: US)
  Receive Date: 20200205
  Receipt Date: 20200205
  Transmission Date: 20200409
  Serious: Yes (Hospitalization)
  Sender: FDA-Public Use
  Company Number: US-NEUROCRINE BIOSCIENCES INC.-2020NBI00265

PATIENT
  Age: 34 Year
  Sex: Female

DRUGS (1)
  1. INGREZZA [Suspect]
     Active Substance: VALBENAZINE
     Indication: TARDIVE DYSKINESIA
     Route: 048
     Dates: start: 20170712

REACTIONS (5)
  - Musculoskeletal pain [Unknown]
  - Tardive dyskinesia [Unknown]
  - Muscle rigidity [Unknown]
  - Tremor [Unknown]
  - Thyroid mass [Unknown]

NARRATIVE: CASE EVENT DATE: 20191220
